FAERS Safety Report 15486985 (Version 5)
Quarter: 2019Q1

REPORT INFORMATION
  Report Type: Report from Study
  Country: PT (occurrence: PT)
  Receive Date: 20181011
  Receipt Date: 20190120
  Transmission Date: 20190417
  Serious: Yes (Death, Hospitalization, Other)
  Sender: FDA-Public Use
  Company Number: PT-AUROBINDO-AUR-APL-2018-047859

PATIENT
  Age: 85 Year

DRUGS (5)
  1. CIPROFLOXACIN FILM-COATED TABLET [Suspect]
     Active Substance: CIPROFLOXACIN
     Indication: URINARY TRACT INFECTION
  2. CIPROFLOXACIN FILM-COATED TABLET [Suspect]
     Active Substance: CIPROFLOXACIN
     Indication: URINARY TRACT INFECTION BACTERIAL
  3. CIPROFLOXACIN FILM-COATED TABLET [Suspect]
     Active Substance: CIPROFLOXACIN
     Indication: ESCHERICHIA URINARY TRACT INFECTION
     Dosage: UNK
     Route: 065
  4. CIPROFLOXACIN FILM-COATED TABLET [Suspect]
     Active Substance: CIPROFLOXACIN
     Indication: ANTIBIOTIC PROPHYLAXIS
  5. CIPROFLOXACIN FILM-COATED TABLET [Suspect]
     Active Substance: CIPROFLOXACIN
     Indication: ESCHERICHIA INFECTION

REACTIONS (3)
  - Escherichia sepsis [Fatal]
  - Sepsis [Fatal]
  - Drug ineffective [Fatal]
